FAERS Safety Report 23200225 (Version 1)
Quarter: 2023Q4

REPORT INFORMATION
  Report Type: Spontaneous
  Country: FR (occurrence: FR)
  Receive Date: 20231118
  Receipt Date: 20231118
  Transmission Date: 20240110
  Serious: Yes (Death, Hospitalization)
  Sender: FDA-Public Use
  Company Number: FR-SA-2016SA024744

PATIENT
  Age: 75 Year
  Sex: Male
  Weight: 83 kg

DRUGS (17)
  1. IRINOTECAN [Suspect]
     Active Substance: IRINOTECAN
     Indication: Colorectal cancer metastatic
     Dosage: 360 MILLIGRAM, CYCLICAL
     Route: 041
     Dates: start: 20151217
  2. IRINOTECAN [Suspect]
     Active Substance: IRINOTECAN
     Dosage: 360 MILLIGRAM, CYCLICAL
     Route: 041
     Dates: start: 20160121
  3. ZALTRAP [Suspect]
     Active Substance: ZIV-AFLIBERCEPT
     Indication: Colorectal cancer metastatic
     Dosage: 344 MILLIGRAM, CYCLICAL
     Route: 041
     Dates: start: 20151217
  4. ZALTRAP [Suspect]
     Active Substance: ZIV-AFLIBERCEPT
     Dosage: 344 MILLIGRAM, CYCLICAL
     Route: 041
     Dates: start: 20160121
  5. LEUCOVORIN [Suspect]
     Active Substance: LEUCOVORIN\LEUCOVORIN CALCIUM
     Indication: Colorectal cancer metastatic
     Dosage: 796 MILLIGRAM, CYCLICAL
     Route: 041
     Dates: start: 20151217
  6. LEUCOVORIN [Suspect]
     Active Substance: LEUCOVORIN\LEUCOVORIN CALCIUM
     Dosage: 796 MILLIGRAM, CYCLICAL
     Route: 041
     Dates: start: 20160121
  7. FLUOROURACIL [Suspect]
     Active Substance: FLUOROURACIL
     Indication: Colorectal cancer metastatic
     Dosage: 800 MILLIGRAM, CYCLICAL
     Route: 040
     Dates: start: 20151217
  8. FLUOROURACIL [Suspect]
     Active Substance: FLUOROURACIL
     Dosage: 4800 MILLIGRAM, CYCLICAL
     Route: 041
     Dates: start: 20151217
  9. FLUOROURACIL [Suspect]
     Active Substance: FLUOROURACIL
     Dosage: 4800 MILLIGRAM, CYCLICAL
     Route: 041
     Dates: start: 20160121
  10. FLUOROURACIL [Suspect]
     Active Substance: FLUOROURACIL
     Dosage: 800 MILLIGRAM, CYCLICAL
     Route: 041
     Dates: start: 20160121
  11. EMEND [Concomitant]
     Active Substance: APREPITANT
     Indication: Prophylaxis
     Dosage: UNK
     Route: 065
     Dates: start: 20160121, end: 20160121
  12. GRANULOCYTE COLONY-STIMULATING FACTOR NOS [Concomitant]
     Active Substance: GRANULOCYTE COLONY-STIMULATING FACTOR NOS
     Indication: Prophylaxis
     Dosage: UNK
     Route: 065
     Dates: start: 20121217
  13. ATROPINE [Concomitant]
     Active Substance: ATROPINE\ATROPINE SULFATE
     Indication: Prophylaxis
     Dosage: UNK
     Route: 065
     Dates: start: 20160121
  14. MONTMORILLONITE [Concomitant]
     Active Substance: MONTMORILLONITE
     Indication: Product used for unknown indication
     Dosage: UNK
     Route: 065
     Dates: start: 20160114
  15. IMODIUM [Concomitant]
     Active Substance: LOPERAMIDE HYDROCHLORIDE
     Indication: Product used for unknown indication
     Dosage: UNK
     Route: 065
     Dates: start: 20160114, end: 20160201
  16. LOVENOX [Concomitant]
     Active Substance: ENOXAPARIN SODIUM
     Indication: Prophylaxis
     Dosage: UNK
     Route: 065
     Dates: start: 20160104
  17. ONDANSETRON [Concomitant]
     Active Substance: ONDANSETRON
     Indication: Prophylaxis
     Dosage: UNK
     Route: 065
     Dates: start: 20160121, end: 20160121

REACTIONS (2)
  - General physical health deterioration [Fatal]
  - Hiccups [Recovered/Resolved]

NARRATIVE: CASE EVENT DATE: 20160121
